FAERS Safety Report 4636310-2 (Version None)
Quarter: 2005Q2

REPORT INFORMATION
  Report Type: 
  Country: None (occurrence: None)
  Receive Date: 20050415
  Receipt Date: 20040831
  Transmission Date: 20051028
  Serious: No
  Sender: FDA-Public Use
  Company Number: US-BRISTOL-MYERS SQUIBB COMPANY-12688420

PATIENT
  Age: 59 Year
  Sex: Female

DRUGS (6)
  1. CARBOPLATIN [Suspect]
     Indication: BREAST CANCER METASTATIC
     Dosage: DOSAGE: 200 - 360; THERAPY DATES: 25-MAR TO 15-JUL-2004
     Route: 042
     Dates: start: 20040715, end: 20040715
  2. TAXOL [Concomitant]
     Dates: start: 20040325, end: 20040805
  3. HERCEPTIN [Concomitant]
  4. KYTRIL [Concomitant]
     Indication: PREMEDICATION
  5. ATIVAN [Concomitant]
     Indication: PREMEDICATION
  6. DECADRON [Concomitant]
     Indication: PREMEDICATION

REACTIONS (1)
  - RASH PRURITIC [None]
